FAERS Safety Report 10751498 (Version 1)
Quarter: 2015Q1

REPORT INFORMATION
  Report Type: Spontaneous
  Country: US (occurrence: None)
  Receive Date: 20150129
  Receipt Date: 20150129
  Transmission Date: 20150721
  Serious: Yes (Life-Threatening, Hospitalization)
  Sender: FDA-Public Use
  Company Number: None

PATIENT
  Age: 67 Year
  Sex: Male

DRUGS (9)
  1. FERAHEME [Suspect]
     Active Substance: FERUMOXYTOL NON-STOICHIOMETRIC MAGNETITE
     Indication: IRON DEFICIENCY ANAEMIA
     Route: 042
     Dates: start: 20150115, end: 20150115
  2. FISH OIL [Concomitant]
     Active Substance: FISH OIL
  3. ASPIRIN EC [Concomitant]
     Active Substance: ASPIRIN
  4. ATORVASTATIN [Concomitant]
     Active Substance: ATORVASTATIN
  5. VALSARTAN. [Concomitant]
     Active Substance: VALSARTAN
  6. CIPROFLOXACIN. [Concomitant]
     Active Substance: CIPROFLOXACIN
  7. GABAPENTIN. [Concomitant]
     Active Substance: GABAPENTIN
  8. ACYCLOVIR. [Concomitant]
     Active Substance: ACYCLOVIR
  9. MORPHINE [Concomitant]
     Active Substance: MORPHINE

REACTIONS (3)
  - Respiratory arrest [None]
  - Nausea [None]
  - Throat tightness [None]

NARRATIVE: CASE EVENT DATE: 20150115
